FAERS Safety Report 17699589 (Version 2)
Quarter: 2020Q3

REPORT INFORMATION
  Report Type: Report from Study
  Country: IN (occurrence: IN)
  Receive Date: 20200423
  Receipt Date: 20200428
  Transmission Date: 20201105
  Serious: Yes (Other)
  Sender: FDA-Public Use
  Company Number: IN-PFIZER INC-2020137962

PATIENT
  Age: 54 Year
  Sex: Female
  Weight: 93 kg

DRUGS (1)
  1. TALAZOPARIB. [Suspect]
     Active Substance: TALAZOPARIB
     Indication: OVARIAN CANCER
     Dosage: 1 MG, 1X/DAY
     Route: 048
     Dates: start: 20190128, end: 20190919

REACTIONS (1)
  - Pancytopenia [Unknown]

NARRATIVE: CASE EVENT DATE: 20190916
